FAERS Safety Report 7464350-7 (Version None)
Quarter: 2011Q2

REPORT INFORMATION
  Report Type: 
  Country: None (occurrence: None)
  Receive Date: 20110509
  Receipt Date: 20110427
  Transmission Date: 20111010
  Serious: Yes (Hospitalization, Other)
  Sender: FDA-Public Use
  Company Number: GB-BAYER-200927593GPV

PATIENT
  Age: 63 Year
  Sex: Female
  Weight: 64 kg

DRUGS (13)
  1. PROCHLORPERAZINE MALEATE [Concomitant]
     Indication: VOMITING
     Dosage: 3 MG (DAILY DOSE), PRN, BUCCAL
     Route: 002
  2. PARACETAMOL [Concomitant]
     Indication: HEADACHE
     Dosage: 15 QDS PRN
     Route: 048
     Dates: start: 20060202
  3. PARACETAMOL [Concomitant]
     Indication: PAIN
  4. DOMPERIDONE [Concomitant]
     Indication: NAUSEA
  5. PROCHLORPERAZINE MALEATE [Concomitant]
     Indication: NAUSEA
  6. NEXAVAR [Suspect]
     Dosage: 400 MG (DAILY DOSE), QD, ORAL
     Route: 048
     Dates: start: 20090828
  7. DOMPERIDONE [Concomitant]
     Indication: VOMITING
     Dosage: 40 MG (DAILY DOSE), , ORAL
     Route: 048
     Dates: start: 20070810
  8. ZOPICLONE [Concomitant]
     Indication: INSOMNIA
  9. LOPERAMIDE [Concomitant]
     Indication: DIARRHOEA
     Dosage: 2 MG (DAILY DOSE), PRN, ORAL
     Route: 048
     Dates: start: 20051209
  10. MORPHINE [Concomitant]
     Indication: ANALGESIC THERAPY
     Dosage: 5 MG (DAILY DOSE), ,
     Dates: start: 20090801, end: 20090801
  11. CODEINE PHOSPHATE [Concomitant]
     Indication: HEPATIC PAIN
     Dosage: 60 MG QDS PRN
     Route: 048
     Dates: start: 20090228
  12. NEXAVAR [Suspect]
     Indication: NEUROENDOCRINE CARCINOMA
     Dosage: ORAL TRIAL MEDICATION TAKEN IN THE EVENING.
     Route: 048
     Dates: start: 20060521, end: 20090803
  13. ZOPICLONE [Concomitant]
     Indication: FATIGUE
     Dosage: 7.5 MG (DAILY DOSE), , ORAL
     Route: 048
     Dates: start: 20060105

REACTIONS (1)
  - DUODENAL ULCER [None]
